FAERS Safety Report 13595999 (Version 1)
Quarter: 2017Q2

REPORT INFORMATION
  Report Type: Spontaneous
  Country: US (occurrence: US)
  Receive Date: 20170530
  Receipt Date: 20170530
  Transmission Date: 20170830
  Serious: Yes (Other)
  Sender: FDA-Public Use
  Company Number: None

PATIENT
  Age: 42 Year
  Sex: Female

DRUGS (1)
  1. TALTZ [Suspect]
     Active Substance: IXEKIZUMAB
     Indication: PRODUCT USED FOR UNKNOWN INDICATION
     Dosage: ?          OTHER FREQUENCY:Q 4 WEELS;?
     Route: 058

REACTIONS (5)
  - Injection site swelling [None]
  - Injection site pain [None]
  - Injection site rash [None]
  - Injection site bruising [None]
  - Injection site erythema [None]

NARRATIVE: CASE EVENT DATE: 20170526
